APPROVED DRUG PRODUCT: METHADONE HYDROCHLORIDE
Active Ingredient: METHADONE HYDROCHLORIDE
Strength: 10MG/5ML
Dosage Form/Route: SOLUTION;ORAL
Application: A087997 | Product #001 | TE Code: AA
Applicant: HIKMA PHARMACEUTICALS USA INC
Approved: Aug 30, 1982 | RLD: Yes | RS: Yes | Type: RX